FAERS Safety Report 11242556 (Version 1)
Quarter: 2015Q3

REPORT INFORMATION
  Report Type: Spontaneous
  Country: JP (occurrence: None)
  Receive Date: 20150702
  Receipt Date: 20150702
  Transmission Date: 20151125
  Serious: Yes (Other)
  Sender: FDA-Public Use
  Company Number: ABR_02280_2015

PATIENT
  Age: 78 Year
  Sex: Female

DRUGS (1)
  1. GLIADEL [Suspect]
     Active Substance: CARMUSTINE
     Indication: GLIOBLASTOMA
     Dosage: 8 TOTAL INTRACEREBRAL

REACTIONS (4)
  - Brain oedema [None]
  - Hemiplegia [None]
  - Condition aggravated [None]
  - Post procedural complication [None]
